FAERS Safety Report 23760458 (Version 3)
Quarter: 2024Q4

REPORT INFORMATION
  Report Type: Report from Study
  Country: CA (occurrence: CA)
  Receive Date: 20240419
  Receipt Date: 20241111
  Transmission Date: 20250115
  Serious: Yes (Death, Hospitalization, Other)
  Sender: SANDOZ
  Company Number: CA-SANDOZ-SDZ2023CA066922

PATIENT
  Sex: Male

DRUGS (3)
  1. HYRIMOZ [Suspect]
     Active Substance: ADALIMUMAB-ADAZ
     Indication: Rheumatoid arthritis
     Dosage: 40 MG, Q2W, (PRE-FILLED PEN)
     Route: 058
     Dates: start: 20231117
  2. HYRIMOZ [Suspect]
     Active Substance: ADALIMUMAB-ADAZ
     Dosage: 40 MG, Q2W, (PRE-FILLED SYRINGE)
     Route: 058
     Dates: end: 202404
  3. PREDNISONE [Concomitant]
     Active Substance: PREDNISONE
     Indication: Product used for unknown indication
     Dosage: UNK
     Route: 065
     Dates: start: 202404

REACTIONS (8)
  - Death [Fatal]
  - Diarrhoea [Fatal]
  - Hypovolaemic shock [Fatal]
  - Aspiration [Fatal]
  - Oxygen therapy [Unknown]
  - Condition aggravated [Unknown]
  - Interstitial lung disease [Unknown]
  - Drug ineffective [Unknown]
